FAERS Safety Report 8023032-3 (Version None)
Quarter: 2012Q1

REPORT INFORMATION
  Report Type: 
  Country: None (occurrence: None)
  Receive Date: 20120104
  Receipt Date: 20111228
  Transmission Date: 20120608
  Serious: Yes (Other)
  Sender: FDA-Public Use
  Company Number: US-ASTRAZENECA-2011SE78564

PATIENT
  Age: 2 Year
  Sex: Male

DRUGS (1)
  1. NEXIUM [Suspect]
     Dosage: TWO 40 MG PILLS
     Route: 048

REACTIONS (1)
  - ACCIDENTAL DRUG INTAKE BY CHILD [None]
